FAERS Safety Report 7489935-3 (Version None)
Quarter: 2011Q2

REPORT INFORMATION
  Report Type: 
  Country: None (occurrence: None)
  Receive Date: 20110519
  Receipt Date: 20110506
  Transmission Date: 20111010
  Serious: Yes (Hospitalization, Other)
  Sender: FDA-Public Use
  Company Number: US-BAYER-2011-004575

PATIENT
  Age: 26 Year
  Sex: Female
  Weight: 59 kg

DRUGS (5)
  1. YASMIN [Suspect]
     Indication: CONTRACEPTION
     Dosage: UNK
     Dates: start: 20020101, end: 20081201
  2. YASMIN [Suspect]
     Dosage: UNK
     Dates: start: 20040201, end: 20090102
  3. PROAIR HFA [Concomitant]
     Indication: ASTHMA
     Dosage: UNK
     Dates: start: 20090101
  4. LEXAPRO [Concomitant]
     Indication: DEPRESSION
     Dosage: UNK
     Dates: start: 20020101
  5. XANAX [Concomitant]

REACTIONS (6)
  - CEREBRAL THROMBOSIS [None]
  - ANXIETY [None]
  - WEIGHT INCREASED [None]
  - PAIN [None]
  - PULMONARY EMBOLISM [None]
  - ASTHMA [None]
